FAERS Safety Report 8523593-1 (Version None)
Quarter: 2012Q3

REPORT INFORMATION
  Report Type: 
  Country: None (occurrence: None)
  Receive Date: 20120720
  Receipt Date: 20080713
  Transmission Date: 20120928
  Serious: Yes (Other)
  Sender: FDA-Public Use
  Company Number: CO-PFIZER INC-2012170881

PATIENT
  Age: 68 Year
  Sex: Female

DRUGS (4)
  1. METOPROLOL TARTRATE [Concomitant]
     Dosage: 50 MG, 2X/DAY
  2. LIPITOR [Suspect]
     Indication: DYSLIPIDAEMIA
     Dosage: 20 MG, 1X/DAY
  3. ASPIRIN [Concomitant]
     Dosage: 100 MG, 1X/DAY
  4. OLMESARTAN MEDOXOMIL AND HYDROCHLOROTHIZIDE [Suspect]
     Indication: HYPERTENSION
     Dosage: [OLMESARTAN MEDOXOMIL 20 MG/ HYDROCHLOROTHIAZIDE 12.5 MG], EVERY 12 HOURS

REACTIONS (6)
  - ANGIOPATHY [None]
  - DEPRESSION [None]
  - CHEST PAIN [None]
  - BIPOLAR DISORDER [None]
  - MANIA [None]
  - OBESITY [None]
